FAERS Safety Report 10029162 (Version 1)
Quarter: 2014Q1

REPORT INFORMATION
  Report Type: Spontaneous
  Country: NL (occurrence: NL)
  Receive Date: 20140321
  Receipt Date: 20140321
  Transmission Date: 20141002
  Serious: Yes (Life-Threatening)
  Sender: FDA-Public Use
  Company Number: NL-009507513-1403NLD010308

PATIENT
  Age: 57 Year
  Sex: Female

DRUGS (7)
  1. SYNAPAUSE-E3 [Suspect]
     Indication: SKIN DISORDER
     Dosage: 4 MG, QD
     Route: 048
     Dates: start: 20140128, end: 20140304
  2. VENLAFAXINE HYDROCHLORIDE [Concomitant]
     Dosage: 150 MG, BID
     Route: 048
     Dates: start: 2006
  3. METFORMIN [Concomitant]
     Dosage: 1000 MG, TID
     Route: 048
     Dates: start: 2010
  4. GLICLAZIDE [Concomitant]
     Dosage: 80 MG, QD
     Route: 048
     Dates: start: 2012
  5. DIAZEPAM [Concomitant]
     Dosage: 10 MG, QD, EXTRA INFO: ANTE NOCTUM
     Route: 048
     Dates: start: 2003
  6. THYRAX DUOTAB [Concomitant]
     Dosage: 0.025 MG, TID
     Route: 048
     Dates: start: 2010
  7. THYRAX DUOTAB [Concomitant]
     Dosage: 0.2 MG, QD
     Route: 048
     Dates: start: 2000

REACTIONS (1)
  - Mood swings [Not Recovered/Not Resolved]
